FAERS Safety Report 20988984 (Version 1)
Quarter: 2022Q2

REPORT INFORMATION
  Report Type: Report from Study
  Country: PL (occurrence: PL)
  Receive Date: 20220621
  Receipt Date: 20220621
  Transmission Date: 20220721
  Serious: Yes (Hospitalization)
  Sender: FDA-Public Use
  Company Number: PL-CELGENE-POL-20210903832

PATIENT
  Age: 70 Year
  Sex: Male
  Weight: 66.3 kg

DRUGS (21)
  1. POMALIDOMIDE [Suspect]
     Active Substance: POMALIDOMIDE
     Indication: Plasma cell myeloma
     Route: 048
     Dates: start: 20210331, end: 20210807
  2. DEXAMETHASONE [Suspect]
     Active Substance: DEXAMETHASONE
     Indication: Plasma cell myeloma
     Route: 048
     Dates: start: 20210331, end: 20210804
  3. DARATUMUMAB [Suspect]
     Active Substance: DARATUMUMAB
     Indication: Plasma cell myeloma
     Dosage: ALSO REPORTED AS 15 ML
     Route: 058
     Dates: start: 20210331, end: 20210804
  4. ASPIRIN [Concomitant]
     Active Substance: ASPIRIN
     Indication: Thrombosis prophylaxis
     Dosage: 100 MILLIGRAM
     Route: 048
     Dates: start: 20160902, end: 20210812
  5. ATORVASTATIN [Concomitant]
     Active Substance: ATORVASTATIN
     Indication: Hypercholesterolaemia
     Dosage: 20 MILLIGRAM
     Route: 048
     Dates: start: 20190215
  6. TORSEMIDE [Concomitant]
     Active Substance: TORSEMIDE
     Indication: Hypertension
     Dosage: 5 MILLIGRAM
     Route: 048
     Dates: start: 20190215
  7. AMLODIPINE BESYLATE [Concomitant]
     Active Substance: AMLODIPINE BESYLATE
     Indication: Hypertension
     Dosage: 5 MILLIGRAM
     Route: 048
     Dates: start: 20190215
  8. ACYCLOVIR [Concomitant]
     Active Substance: ACYCLOVIR
     Indication: Thrombosis prophylaxis
     Dosage: 800 MILLIGRAM
     Route: 048
     Dates: start: 20200217, end: 20210919
  9. PANTOPRAZOLE [Concomitant]
     Active Substance: PANTOPRAZOLE
     Indication: Gastrointestinal haemorrhage
     Dosage: 20 MILLIGRAM
     Route: 048
     Dates: start: 20200217
  10. CALCIUM [Concomitant]
     Active Substance: CALCIUM
     Indication: Osteopenia
     Dosage: 500 MILLIGRAM
     Route: 048
     Dates: start: 20200217, end: 20210812
  11. VITAMIN D3 [Concomitant]
     Active Substance: CHOLECALCIFEROL
     Indication: Osteopenia
     Dosage: 200 IU (INTERNATIONAL UNIT)
     Route: 048
     Dates: start: 20200217, end: 20210812
  12. ZOLPIDEM [Concomitant]
     Active Substance: ZOLPIDEM TARTRATE
     Indication: Prophylaxis
     Dosage: 10 MILLIGRAM
     Route: 048
     Dates: start: 20200415, end: 20210812
  13. PREGABALIN [Concomitant]
     Active Substance: PREGABALIN
     Indication: Peripheral sensory neuropathy
     Dosage: 150 MILLIGRAM
     Route: 048
     Dates: start: 20210120
  14. VITAMIN B1 [Concomitant]
     Active Substance: THIAMINE HYDROCHLORIDE
     Indication: Peripheral sensory neuropathy
     Dosage: 100 MILLIGRAM
     Route: 048
     Dates: start: 20210120, end: 20210920
  15. FOLIC ACID [Concomitant]
     Active Substance: FOLIC ACID
     Indication: Macrocytosis
     Route: 048
     Dates: start: 20210401, end: 20210812
  16. FOLIC ACID [Concomitant]
     Active Substance: FOLIC ACID
     Dosage: 5 MILLIGRAM
     Route: 048
     Dates: start: 20210813, end: 20210929
  17. SULFAMETHOXAZOLE\TRIMETHOPRIM [Concomitant]
     Active Substance: SULFAMETHOXAZOLE\TRIMETHOPRIM
     Indication: Infection prophylaxis
     Dosage: 800/160 MG
     Route: 048
     Dates: start: 20210401, end: 20210919
  18. FILGRASTIM [Concomitant]
     Active Substance: FILGRASTIM
     Indication: Prophylaxis
     Dosage: 300 MICROGRAM
     Route: 048
     Dates: start: 20210726, end: 20210728
  19. FILGRASTIM [Concomitant]
     Active Substance: FILGRASTIM
     Dosage: 300 MICROGRAM
     Route: 048
     Dates: start: 20210813, end: 20210817
  20. VITAMIN B2 [Concomitant]
     Active Substance: RIBOFLAVIN
     Indication: Peripheral sensory neuropathy
     Dosage: 200 MILLIGRAM
     Route: 048
     Dates: start: 20210120, end: 20210920
  21. VITAMIN B12 [Concomitant]
     Active Substance: CYANOCOBALAMIN
     Indication: Peripheral sensory neuropathy
     Dosage: .2 MILLIGRAM
     Route: 048
     Dates: start: 20210120, end: 20210920

REACTIONS (1)
  - Mental disorder [Recovered/Resolved with Sequelae]

NARRATIVE: CASE EVENT DATE: 20210807
